FAERS Safety Report 6883811-2 (Version None)
Quarter: 2010Q3

REPORT INFORMATION
  Report Type: 
  Country: None (occurrence: None)
  Receive Date: 20100727
  Receipt Date: 20100721
  Transmission Date: 20110219
  Serious: Yes (Hospitalization, Other)
  Sender: FDA-Public Use
  Company Number: 2010TJ0132

PATIENT
  Sex: Female

DRUGS (2)
  1. TWINJET (EPINEPHRINE) INJECTION [Suspect]
     Indication: HYPERSENSITIVITY
     Dosage: 0.3 MG, AS NEEDED 0.3.MG AS NEEDED
     Dates: start: 20100706, end: 20100706
  2. TWINJET  (EPINEPHRINE) INJECTION [Suspect]
     Indication: HYPERSENSITIVITY
     Dates: start: 20100706, end: 20100706

REACTIONS (1)
  - DEVICE FAILURE [None]
